FAERS Safety Report 6119900-X (Version None)
Quarter: 2009Q1

REPORT INFORMATION
  Report Type: 
  Country: None (occurrence: None)
  Receive Date: 20090311
  Receipt Date: 20090223
  Transmission Date: 20090719
  Serious: Yes (Other)
  Sender: FDA-Public Use
  Company Number: 8043724

PATIENT
  Age: 41 Year
  Sex: Male
  Weight: 84 kg

DRUGS (5)
  1. KEPPRA [Suspect]
     Dosage: 3000 MG ONCE PO
     Route: 048
     Dates: start: 20090223, end: 20090223
  2. ASPIRIN [Suspect]
     Dosage: 2 DF ONCE PO
     Route: 048
     Dates: start: 20090223, end: 20090223
  3. CARBAMAZEPINE [Suspect]
     Dosage: 4800 MG ONCE PO
     Route: 048
     Dates: start: 20090223, end: 20090223
  4. LAMOTRIGINE [Suspect]
     Dosage: ONCE PO
     Route: 048
     Dates: start: 20090223, end: 20090223
  5. MIRTAZAPINE [Suspect]
     Dosage: 270 MG ONCE PO
     Route: 048

REACTIONS (3)
  - DISTURBANCE IN ATTENTION [None]
  - SUICIDE ATTEMPT [None]
  - SYSTOLIC HYPERTENSION [None]
